FAERS Safety Report 14115799 (Version 1)
Quarter: 2017Q4

REPORT INFORMATION
  Report Type: Spontaneous
  Country: US (occurrence: US)
  Receive Date: 20171023
  Receipt Date: 20171023
  Transmission Date: 20180321
  Serious: No
  Sender: FDA-Public Use
  Company Number: US-SA-2016SA187614

PATIENT
  Age: 78 Year
  Sex: Female

DRUGS (1)
  1. AVALIDE [Suspect]
     Active Substance: HYDROCHLOROTHIAZIDE\IRBESARTAN
     Indication: HYPERTENSION
     Dosage: DOSE AND DAILY DOSE  300/12.5 MG
     Dates: start: 201609

REACTIONS (1)
  - Blood pressure increased [Not Recovered/Not Resolved]
